FAERS Safety Report 12341814 (Version 2)
Quarter: 2016Q2

REPORT INFORMATION
  Report Type: Spontaneous
  Country: US (occurrence: US)
  Receive Date: 20160506
  Receipt Date: 20160516
  Transmission Date: 20160815
  Serious: Yes (Hospitalization)
  Sender: FDA-Public Use
  Company Number: US-JNJFOC-20160500743

PATIENT
  Age: 39 Year
  Sex: Female
  Weight: 56.25 kg

DRUGS (6)
  1. XARELTO [Suspect]
     Active Substance: RIVAROXABAN
     Indication: PULMONARY EMBOLISM
     Dosage: 40 MG/0.8 ML (40 MILLIGRAM, SOLUTION FOR INJECTION IN PRE-FILLED PEN)
     Route: 048
     Dates: end: 201604
  2. VITAMIN D [Concomitant]
     Active Substance: CHOLECALCIFEROL
     Route: 065
  3. HUMIRA [Suspect]
     Active Substance: ADALIMUMAB
     Indication: CROHN^S DISEASE
     Dosage: 40 MG/0.8ML (40 MILLIGRAM, SOLUTION FOR INJECTION IN PRE-FILLED PEN).
     Route: 058
     Dates: start: 2006, end: 2006
  4. HUMIRA [Suspect]
     Active Substance: ADALIMUMAB
     Indication: CROHN^S DISEASE
     Dosage: LOADING DOSE (160 MG ONCE, 60 MG ONCE, 40 MG 1 IN 2 WEEK)
     Route: 058
     Dates: end: 201604
  5. XANAX [Concomitant]
     Active Substance: ALPRAZOLAM
     Indication: ANXIETY
     Route: 065
  6. VENOFER [Concomitant]
     Active Substance: IRON SUCROSE
     Dosage: DAILY DOSE: 1 IN 1 WEEK
     Route: 065

REACTIONS (2)
  - Fistula [Recovering/Resolving]
  - Gastrointestinal haemorrhage [Recovered/Resolved]

NARRATIVE: CASE EVENT DATE: 201604
